FAERS Safety Report 8035879-8 (Version None)
Quarter: 2012Q1

REPORT INFORMATION
  Report Type: 
  Country: None (occurrence: None)
  Receive Date: 20120111
  Receipt Date: 20120111
  Transmission Date: 20120608
  Serious: Yes (Hospitalization)
  Sender: FDA-Public Use
  Company Number: None

PATIENT
  Sex: Female
  Weight: 74.842 kg

DRUGS (2)
  1. GAS-C CHEWABLES [Suspect]
     Indication: ABDOMINAL PAIN
     Dosage: 2 CHEWABLES
     Route: 048
     Dates: start: 20120108, end: 20120108
  2. GAS-C CHEWABLES [Suspect]
     Indication: FLATULENCE
     Dosage: 2 CHEWABLES
     Route: 048
     Dates: start: 20120108, end: 20120108

REACTIONS (1)
  - ABDOMINAL PAIN [None]
